FAERS Safety Report 5255978-3 (Version None)
Quarter: 2007Q1

REPORT INFORMATION
  Report Type: 
  Country: None (occurrence: None)
  Receive Date: 20070302
  Receipt Date: 20070302
  Transmission Date: 20070707
  Serious: Yes (Life-Threatening, Hospitalization)
  Sender: FDA-Public Use
  Company Number: None

PATIENT
  Sex: Female
  Weight: 89 kg

DRUGS (1)
  1. XOLAIR [Suspect]
     Indication: ASTHMA
     Dosage: 375 MG   EVERY 2 WEEKS  SQ STILL RECEIVING
     Route: 058
     Dates: start: 20060401

REACTIONS (2)
  - GOODPASTURE'S SYNDROME [None]
  - RENAL FAILURE ACUTE [None]
